FAERS Safety Report 23457651 (Version 1)
Quarter: 2024Q1

REPORT INFORMATION
  Report Type: Spontaneous
  Country: US (occurrence: US)
  Receive Date: 20240130
  Receipt Date: 20240130
  Transmission Date: 20240410
  Serious: No
  Sender: FDA-Public Use
  Company Number: US-GALDERMA-US2023003300

PATIENT

DRUGS (4)
  1. SOOLANTRA [Suspect]
     Active Substance: IVERMECTIN
     Indication: Product used for unknown indication
     Dosage: 1 DOSAGE FORM
     Route: 061
  2. COSMETICS [Suspect]
     Active Substance: COSMETICS
     Indication: Rosacea
     Dosage: 1 DOSAGE FORM, BID
     Route: 061
     Dates: start: 202302
  3. COSMETICS [Suspect]
     Active Substance: COSMETICS
     Indication: Erythema
     Dosage: 1 DOSAGE FORM, QD
     Route: 061
     Dates: start: 2023
  4. COSMETICS [Suspect]
     Active Substance: COSMETICS
     Dosage: 1 DOSAGE FORM, BID
     Route: 061
     Dates: start: 2023

REACTIONS (5)
  - Skin irritation [Not Recovered/Not Resolved]
  - Rosacea [Not Recovered/Not Resolved]
  - Rash macular [Not Recovered/Not Resolved]
  - Erythema [Not Recovered/Not Resolved]
  - Dry skin [Recovered/Resolved]
